FAERS Safety Report 12445807 (Version 1)
Quarter: 2016Q2

REPORT INFORMATION
  Report Type: Spontaneous
  Country: US (occurrence: US)
  Receive Date: 20160608
  Receipt Date: 20160608
  Transmission Date: 20160815
  Serious: No
  Sender: FDA-Public Use
  Company Number: US-JNJFOC-20160515909

PATIENT
  Sex: Male

DRUGS (2)
  1. TYLENOL EXTRA STRENGTH [Suspect]
     Active Substance: ACETAMINOPHEN
     Indication: PRODUCT USED FOR UNKNOWN INDICATION
     Dosage: 2 CAPLETS THEN 4 CAPLETS, 2X - 2AM THEN 6AM
     Route: 065
     Dates: start: 20160515
  2. TYLENOL EXTRA STRENGTH [Suspect]
     Active Substance: ACETAMINOPHEN
     Indication: PRODUCT USED FOR UNKNOWN INDICATION
     Route: 065
     Dates: start: 20160516

REACTIONS (5)
  - Dizziness [Not Recovered/Not Resolved]
  - Extra dose administered [Unknown]
  - Presyncope [Not Recovered/Not Resolved]
  - Inappropriate schedule of drug administration [Unknown]
  - Nausea [Not Recovered/Not Resolved]

NARRATIVE: CASE EVENT DATE: 20160516
